FAERS Safety Report 5077983-2 (Version None)
Quarter: 2006Q3

REPORT INFORMATION
  Report Type: 
  Country: None (occurrence: None)
  Receive Date: 20060811
  Receipt Date: 20060801
  Transmission Date: 20061208
  Serious: Yes (Other)
  Sender: FDA-Public Use
  Company Number: PHRM2006FR02221

PATIENT
  Sex: Female

DRUGS (2)
  1. VOLTAREN [Suspect]
     Indication: HAEMORRHOIDS
     Dosage: 75 MG, BID
     Route: 030
     Dates: start: 20060522, end: 20060522
  2. VOLTAREN [Suspect]
     Dosage: 75 MG, QD
     Route: 030
     Dates: start: 20060523, end: 20060523

REACTIONS (6)
  - CAESAREAN SECTION [None]
  - DRUG EXPOSURE DURING PREGNANCY [None]
  - FOETAL ARRHYTHMIA [None]
  - FOETAL DISTRESS SYNDROME [None]
  - INDUCED LABOUR [None]
  - PROLONGED PREGNANCY [None]
